FAERS Safety Report 4711150-4 (Version None)
Quarter: 2005Q3

REPORT INFORMATION
  Report Type: 
  Country: None (occurrence: None)
  Receive Date: 20050711
  Receipt Date: 20050630
  Transmission Date: 20060218
  Serious: Yes (Hospitalization)
  Sender: FDA-Public Use
  Company Number: JP-NOVOPROD-245238

PATIENT
  Age: 13 Year
  Sex: Male

DRUGS (1)
  1. NORDITROPIN NORDIFLEX [Suspect]
     Indication: GROWTH HORMONE DEFICIENCY
     Route: 058

REACTIONS (2)
  - EPILEPSY [None]
  - LOSS OF CONSCIOUSNESS [None]
